FAERS Safety Report 15042593 (Version 3)
Quarter: 2018Q4

REPORT INFORMATION
  Report Type: Spontaneous
  Country: US (occurrence: US)
  Receive Date: 20180621
  Receipt Date: 20181112
  Transmission Date: 20190204
  Serious: No
  Sender: FDA-Public Use
  Company Number: US-PFIZER INC-2018249791

PATIENT
  Age: 41 Year
  Sex: Female

DRUGS (1)
  1. XELJANZ XR [Suspect]
     Active Substance: TOFACITINIB CITRATE
     Dosage: 11 MG, DAILY

REACTIONS (5)
  - Chest pain [Unknown]
  - Gastrooesophageal reflux disease [Unknown]
  - Pain in extremity [Unknown]
  - Amenorrhoea [Unknown]
  - Chest discomfort [Unknown]
